FAERS Safety Report 4874403-5 (Version None)
Quarter: 2006Q1

REPORT INFORMATION
  Report Type: 
  Country: None (occurrence: None)
  Receive Date: 20060104
  Receipt Date: 20060104
  Transmission Date: 20060701
  Serious: Yes (Other)
  Sender: FDA-Public Use
  Company Number: None

PATIENT
  Age: 46 Year
  Sex: Male
  Weight: 108.8633 kg

DRUGS (1)
  1. OXYCONTIN [Suspect]
     Indication: PAIN IN EXTREMITY
     Dosage: 80MG TID PO
     Route: 048

REACTIONS (3)
  - HEADACHE [None]
  - NAUSEA [None]
  - VOMITING [None]
